FAERS Safety Report 5802911-9 (Version None)
Quarter: 2008Q3

REPORT INFORMATION
  Report Type: 
  Country: None (occurrence: None)
  Receive Date: 20080708
  Receipt Date: 20080708
  Transmission Date: 20090109
  Serious: Yes (Other)
  Sender: FDA-Public Use
  Company Number: A0736383A

PATIENT
  Age: 59 Year
  Sex: Female

DRUGS (6)
  1. ALLI [Suspect]
     Dates: start: 20070701, end: 20080701
  2. TRICOR [Suspect]
     Dosage: 145MG PER DAY
     Dates: start: 20070601, end: 20080701
  3. LIPITOR [Concomitant]
     Dates: end: 20080701
  4. ASPIRIN [Concomitant]
  5. VITAMIN B6 [Concomitant]
  6. DIURETIC [Concomitant]

REACTIONS (1)
  - HEPATIC ENZYME INCREASED [None]
